FAERS Safety Report 11690026 (Version 1)
Quarter: 2015Q4

REPORT INFORMATION
  Report Type: Spontaneous
  Country: US (occurrence: US)
  Receive Date: 20151102
  Receipt Date: 20151102
  Transmission Date: 20160304
  Serious: No
  Sender: FDA-Public Use
  Company Number: US-WATSON-2015-07508

PATIENT
  Age: 66 Year
  Sex: Male

DRUGS (1)
  1. RAPAFLO [Suspect]
     Active Substance: SILODOSIN
     Indication: URINARY RETENTION
     Dosage: 1 DF, DAILY
     Route: 048
     Dates: start: 201503, end: 20150325

REACTIONS (6)
  - Cold sweat [Recovered/Resolved]
  - Diarrhoea [Recovered/Resolved]
  - Urticaria [Not Recovered/Not Resolved]
  - Nasal congestion [Recovering/Resolving]
  - Pyrexia [Recovered/Resolved]
  - Rash [Not Recovered/Not Resolved]

NARRATIVE: CASE EVENT DATE: 20150324
